FAERS Safety Report 19234003 (Version 2)
Quarter: 2021Q2

REPORT INFORMATION
  Report Type: Spontaneous
  Country: US (occurrence: US)
  Receive Date: 20210508
  Receipt Date: 20210528
  Transmission Date: 20210717
  Serious: Yes (Other)
  Sender: FDA-Public Use
  Company Number: US-TEVA-2021-US-1909256

PATIENT
  Sex: Female

DRUGS (15)
  1. COPAXONE [Suspect]
     Active Substance: GLATIRAMER ACETATE
     Indication: MULTIPLE SCLEROSIS
     Dosage: FORM STRENGTH UNKNOWN
     Route: 065
  2. LICORICE. [Concomitant]
     Active Substance: LICORICE
  3. DOCUSATE SODIUM. [Concomitant]
     Active Substance: DOCUSATE SODIUM
  4. VITAMIN C [Concomitant]
     Active Substance: ASCORBIC ACID
  5. VITAMIN B12 [Concomitant]
     Active Substance: CYANOCOBALAMIN
  6. RECLAST [Concomitant]
     Active Substance: ZOLEDRONIC ACID
  7. VITAMIN D3 [Concomitant]
     Active Substance: CHOLECALCIFEROL
  8. CITRUCEL [Concomitant]
     Active Substance: METHYLCELLULOSE (4000 MPA.S)
  9. POTASSIUM [Concomitant]
     Active Substance: POTASSIUM
  10. EXCEDRIN MIGRAINE [Concomitant]
     Active Substance: ACETAMINOPHEN\ASPIRIN\CAFFEINE
  11. PROBIOTIC 60 BILLION [Concomitant]
  12. CALCIUM [Concomitant]
     Active Substance: CALCIUM
  13. MAGNESIUM [Concomitant]
     Active Substance: MAGNESIUM
  14. BIOTIN [Concomitant]
     Active Substance: BIOTIN
  15. BENADRYL [Concomitant]
     Active Substance: DIPHENHYDRAMINE HYDROCHLORIDE

REACTIONS (3)
  - Multiple sclerosis [Unknown]
  - Product complaint [Unknown]
  - Multiple sclerosis relapse [Unknown]
